FAERS Safety Report 6682253-2 (Version None)
Quarter: 2010Q2

REPORT INFORMATION
  Report Type: 
  Country: None (occurrence: None)
  Receive Date: 20100415
  Receipt Date: 20100406
  Transmission Date: 20101027
  Serious: No
  Sender: FDA-Public Use
  Company Number: 2010BI001050

PATIENT
  Sex: Female

DRUGS (2)
  1. TYSABRI [Suspect]
     Indication: MULTIPLE SCLEROSIS
     Route: 042
     Dates: start: 20061215
  2. AVONEX [Concomitant]
     Indication: MULTIPLE SCLEROSIS
     Route: 030
     Dates: start: 19971110

REACTIONS (6)
  - COORDINATION ABNORMAL [None]
  - DENTAL CARE [None]
  - FEELING ABNORMAL [None]
  - MEMORY IMPAIRMENT [None]
  - PAIN [None]
  - VISUAL ACUITY REDUCED [None]
